FAERS Safety Report 15657832 (Version 1)
Quarter: 2018Q4

REPORT INFORMATION
  Report Type: Spontaneous
  Country: NL (occurrence: NL)
  Receive Date: 20181126
  Receipt Date: 20181126
  Transmission Date: 20190205
  Serious: Yes (Life-Threatening, Other)
  Sender: FDA-Public Use
  Company Number: NL-SAKK-2018SA165516AA

PATIENT
  Age: 94 Year
  Sex: Male
  Weight: 83 kg

DRUGS (8)
  1. DOXAZOSIN [Concomitant]
     Active Substance: DOXAZOSIN\DOXAZOSIN MESYLATE
     Dosage: 1D1
     Route: 065
  2. HYDROCHLOORTHIAZIDE [Concomitant]
     Active Substance: HYDROCHLOROTHIAZIDE
     Dosage: 1D1
     Route: 065
  3. METOPROLOL. [Concomitant]
     Active Substance: METOPROLOL
     Dosage: 1D1
     Route: 065
  4. CHOLECALCIFEROL [Concomitant]
     Active Substance: CHOLECALCIFEROL
     Dosage: UNK UNK, UNK
     Route: 065
  5. SYMBICORT [Concomitant]
     Active Substance: BUDESONIDE\FORMOTEROL FUMARATE DIHYDRATE
     Dosage: 2D1 INHALATIE
     Route: 055
  6. NOVORAPID [Concomitant]
     Active Substance: INSULIN ASPART
     Dosage: 8 EH VOOR DE LUNCH
     Route: 065
  7. TRIAMTEREEN [Concomitant]
     Active Substance: TRIAMTERENE
     Dosage: 1D1
     Route: 065
  8. TOUJEO [Suspect]
     Active Substance: INSULIN GLARGINE
     Indication: TYPE 2 DIABETES MELLITUS
     Dosage: 1 KEER PER DAG 46 EH
     Route: 058
     Dates: start: 20180220

REACTIONS (4)
  - Bradycardia [Unknown]
  - Consciousness fluctuating [Unknown]
  - Hypoglycaemia [Recovered/Resolved with Sequelae]
  - Seizure [Unknown]

NARRATIVE: CASE EVENT DATE: 20180227
